FAERS Safety Report 8003092-6 (Version None)
Quarter: 2011Q4

REPORT INFORMATION
  Report Type: 
  Country: None (occurrence: None)
  Receive Date: 20111222
  Receipt Date: 20111212
  Transmission Date: 20120403
  Serious: Yes (Hospitalization, Other)
  Sender: FDA-Public Use
  Company Number: PHHY2011ES108706

PATIENT

DRUGS (6)
  1. CARBAMAZEPINE [Concomitant]
  2. LAMOTRIGINE [Concomitant]
     Dosage: 250 MG, DAILY
  3. CLOZAPINE [Suspect]
     Dosage: 200 MG, DAILY
  4. HALOPERIDOL [Concomitant]
     Dosage: 5 MG, DAILY
  5. CITALOPRAM HYDROBROMIDE [Concomitant]
     Dosage: 20 MG, DAILY
  6. DIAZEPAM [Concomitant]
     Dosage: 5 MG, DAILY

REACTIONS (12)
  - SCHIZOAFFECTIVE DISORDER DEPRESSIVE TYPE [None]
  - HYPERREFLEXIA [None]
  - DEPRESSED MOOD [None]
  - CEREBRAL ATROPHY [None]
  - LEUKOPENIA [None]
  - FACIAL PARESIS [None]
  - PERSECUTORY DELUSION [None]
  - TREMOR [None]
  - ASTHENIA [None]
  - HALLUCINATIONS, MIXED [None]
  - STRABISMUS [None]
  - GLIOSIS [None]
